FAERS Safety Report 4390037-3 (Version None)
Quarter: 2004Q2

REPORT INFORMATION
  Report Type: 
  Country: None (occurrence: None)
  Receive Date: 20040630
  Receipt Date: 20040616
  Transmission Date: 20050107
  Serious: Yes (Hospitalization, Other)
  Sender: FDA-Public Use
  Company Number: ES-JNJFOC-20040600013

PATIENT
  Age: 32 Year
  Sex: Male
  Weight: 87 kg

DRUGS (4)
  1. REMICADE [Suspect]
     Indication: CROHN'S DISEASE
     Dosage: 5 MG/KG, 1 IN 1 DAY, INTRAVENOUS
     Route: 042
     Dates: start: 20030529, end: 20040405
  2. AZATHIOPRINE [Concomitant]
  3. OMEPRAZOLE [Concomitant]
  4. FERROUS SULFATE TAB [Concomitant]

REACTIONS (2)
  - DYSPNOEA [None]
  - TUBERCULOSIS [None]
